FAERS Safety Report 22294200 (Version 1)
Quarter: 2023Q2

REPORT INFORMATION
  Report Type: Spontaneous
  Country: US (occurrence: US)
  Receive Date: 20230508
  Receipt Date: 20230508
  Transmission Date: 20230721
  Serious: No
  Sender: FDA-Public Use
  Company Number: US-BRISTOL-MYERS SQUIBB COMPANY-2023-064916

PATIENT
  Age: 85 Year
  Sex: Female

DRUGS (2)
  1. ONUREG [Suspect]
     Active Substance: AZACITIDINE
     Indication: Acute myeloid leukaemia
  2. VENCLEXTA [Concomitant]
     Active Substance: VENETOCLAX
     Indication: Product used for unknown indication

REACTIONS (1)
  - Constipation [Unknown]
